FAERS Safety Report 8005143-1 (Version None)
Quarter: 2011Q4

REPORT INFORMATION
  Report Type: 
  Country: None (occurrence: None)
  Receive Date: 20111223
  Receipt Date: 20111215
  Transmission Date: 20120403
  Serious: Yes (Hospitalization)
  Sender: FDA-Public Use
  Company Number: PHHY2011JP110027

PATIENT
  Age: 87 Year
  Sex: Male

DRUGS (2)
  1. CLARITHROMYCIN [Suspect]
     Dosage: 200 MG, BID
     Route: 048
     Dates: start: 20111109, end: 20111111
  2. DIOVAN [Suspect]
     Indication: HYPERTENSION
     Route: 048
     Dates: end: 20111112

REACTIONS (1)
  - BLOOD CREATINE PHOSPHOKINASE INCREASED [None]
